FAERS Safety Report 17006157 (Version 1)
Quarter: 2019Q4

REPORT INFORMATION
  Report Type: Spontaneous
  Country: FR (occurrence: FR)
  Receive Date: 20191107
  Receipt Date: 20191107
  Transmission Date: 20200122
  Serious: Yes (Hospitalization)
  Sender: FDA-Public Use
  Company Number: FR-ETHYPHARM-201902332

PATIENT
  Age: 38 Year
  Sex: Male

DRUGS (3)
  1. BUPRENORPHINE. [Suspect]
     Active Substance: BUPRENORPHINE
     Indication: DRUG USE DISORDER
     Route: 048
  2. IZALGI [Interacting]
     Active Substance: ACETAMINOPHEN\OPIUM
     Indication: SCIATICA
     Dosage: INCONNUE
     Route: 048
     Dates: start: 20190913, end: 20190923
  3. MORPHINE [Interacting]
     Active Substance: MORPHINE
     Indication: SCIATICA
     Route: 042
     Dates: start: 20190923, end: 20190926

REACTIONS (3)
  - Drug ineffective [Recovered/Resolved]
  - Pain [Recovered/Resolved]
  - Drug interaction [Recovered/Resolved]

NARRATIVE: CASE EVENT DATE: 20190920
